FAERS Safety Report 4493070-6 (Version None)
Quarter: 2004Q4

REPORT INFORMATION
  Report Type: 
  Country: None (occurrence: None)
  Receive Date: 20041101
  Receipt Date: 20041018
  Transmission Date: 20050328
  Serious: Yes (Death, Life-Threatening, Hospitalization, Disabling)
  Sender: FDA-Public Use
  Company Number: 2004AP04236

PATIENT
  Age: 53 Year
  Sex: Male
  Weight: 70 kg

DRUGS (16)
  1. IRESSA [Suspect]
     Indication: NEOPLASM MALIGNANT
     Dosage: 500 MG DAILY PO
     Route: 048
     Dates: start: 20040713, end: 20040810
  2. SEROXAT [Concomitant]
  3. LORMETAZEPAM [Concomitant]
  4. SULFARLEM [Concomitant]
  5. EFFORTYL [Concomitant]
  6. RADIATION THERAPY [Concomitant]
  7. CISPLATIN [Concomitant]
  8. DOCETAXEL [Concomitant]
  9. GEMCITABINE [Concomitant]
  10. TRANSTEC [Concomitant]
  11. MORPHINE [Concomitant]
  12. FELDENE [Concomitant]
  13. MEDROL [Concomitant]
  14. SOLU-MEDROL [Concomitant]
  15. ACETAMINOPHEN [Concomitant]
  16. PARIET [Concomitant]

REACTIONS (20)
  - ACUTE RESPIRATORY DISTRESS SYNDROME [None]
  - ADRENAL INSUFFICIENCY [None]
  - ANURIA [None]
  - BACTERIAL INFECTION [None]
  - BLOOD CALCIUM ABNORMAL [None]
  - BLOOD LACTATE DEHYDROGENASE INCREASED [None]
  - BLOOD PRESSURE IMMEASURABLE [None]
  - CYANOSIS [None]
  - DISSEMINATED INTRAVASCULAR COAGULATION [None]
  - DISTURBANCE IN ATTENTION [None]
  - HYPOGLYCAEMIA [None]
  - LOSS OF CONSCIOUSNESS [None]
  - LUNG DISORDER [None]
  - LUNG INFILTRATION [None]
  - MULTI-ORGAN FAILURE [None]
  - PETECHIAE [None]
  - RALES [None]
  - SEPTIC SHOCK [None]
  - SINUS TACHYCARDIA [None]
  - TRANSAMINASES INCREASED [None]
